FAERS Safety Report 8654767 (Version 2)
Quarter: 2012Q4

REPORT INFORMATION
  Report Type: 
  Country: US (occurrence: US)
  Receive Date: 20120709
  Receipt Date: 20121102
  Transmission Date: 20130627
  Serious: Yes (Other)
  Sender: FDA-Public Use
  Company Number: US-PFIZER INC-2012159859

PATIENT
  Age: 81 Year
  Sex: Female

DRUGS (4)
  1. REVATIO [Suspect]
     Dosage: UNK
  2. AMBRISENTAN [Suspect]
     Indication: PULMONARY HYPERTENSION SECONDARY
     Dosage: 5 mg, 1x/day
     Route: 048
     Dates: start: 20120530, end: 20120926
  3. AMBRISENTAN [Suspect]
     Dosage: 5 mg, UNK
     Route: 048
     Dates: start: 20120601
  4. AMBRISENTAN [Suspect]
     Dosage: 5 mg, UNK
     Route: 048

REACTIONS (4)
  - Drug administration error [Unknown]
  - Dyspnoea [Recovered/Resolved]
  - Dizziness [Unknown]
  - Nasal congestion [Unknown]
